FAERS Safety Report 8514437-2 (Version None)
Quarter: 2012Q3

REPORT INFORMATION
  Report Type: 
  Country: None (occurrence: None)
  Receive Date: 20120717
  Receipt Date: 20120710
  Transmission Date: 20120928
  Serious: No
  Sender: FDA-Public Use
  Company Number: US-TEVA-347803USA

PATIENT
  Sex: Female
  Weight: 86.26 kg

DRUGS (6)
  1. COPAXONE [Suspect]
     Indication: MULTIPLE SCLEROSIS
  2. LEXAPRO [Concomitant]
     Indication: DEPRESSION
  3. XANAX [Concomitant]
     Indication: ANXIETY
  4. LYRICA [Concomitant]
     Indication: NEURALGIA
  5. LEVOTHYROXINE SODIUM [Concomitant]
     Indication: HYPOTHYROIDISM
  6. MOTRIN [Concomitant]
     Indication: PAIN

REACTIONS (3)
  - BREAST ENGORGEMENT [None]
  - OEDEMA PERIPHERAL [None]
  - LYMPHADENOPATHY [None]
